FAERS Safety Report 18462688 (Version 3)
Quarter: 2020Q4

REPORT INFORMATION
  Report Type: Spontaneous
  Country: NL (occurrence: LU)
  Receive Date: 20201104
  Receipt Date: 20201204
  Transmission Date: 20210114
  Serious: Yes (Life-Threatening)
  Sender: FDA-Public Use
  Company Number: LU-FRESENIUS KABI-FK202011436

PATIENT
  Age: 27 Year
  Sex: Female
  Weight: 78 kg

DRUGS (4)
  1. ROCURONIUM [Suspect]
     Active Substance: ROCURONIUM BROMIDE
     Indication: GENERAL ANAESTHESIA
     Dosage: 40 MG IN TOTAL
     Route: 042
     Dates: start: 20201013, end: 20201013
  2. CEFAZOLIN [Suspect]
     Active Substance: CEFAZOLIN
     Indication: ANTIBIOTIC PROPHYLAXIS
     Dosage: 2 G IN TOTAL
     Route: 042
     Dates: start: 20201013, end: 20201013
  3. REMIFENTANIL [Suspect]
     Active Substance: REMIFENTANIL
     Indication: GENERAL ANAESTHESIA
     Dosage: 1 G / 1 H
     Route: 041
     Dates: start: 20201013, end: 20201013
  4. PROPOFOL (MANUFACTURER UNKNOWN) [Suspect]
     Active Substance: PROPOFOL
     Indication: GENERAL ANAESTHESIA
     Dosage: 200 MG TOTAL
     Route: 042
     Dates: start: 20201013, end: 20201013

REACTIONS (1)
  - Anaphylactic shock [Recovered/Resolved]

NARRATIVE: CASE EVENT DATE: 20201013
